FAERS Safety Report 25225028 (Version 5)
Quarter: 2025Q2

REPORT INFORMATION
  Report Type: Spontaneous
  Country: PT (occurrence: PT)
  Receive Date: 20250422
  Receipt Date: 20250616
  Transmission Date: 20250717
  Serious: Yes (Hospitalization, Other)
  Sender: AUROBINDO
  Company Number: PT-AUROBINDO-AUR-APL-2025-019864

PATIENT
  Age: 28 Year
  Sex: Female

DRUGS (8)
  1. CEFTRIAXONE [Suspect]
     Active Substance: CEFTRIAXONE
     Indication: Prophylaxis
     Route: 042
  2. CEFTRIAXONE [Suspect]
     Active Substance: CEFTRIAXONE
     Indication: Antibiotic prophylaxis
  3. FOLIC ACID [Suspect]
     Active Substance: FOLIC ACID
     Indication: Pregnancy
     Route: 065
  4. DICLOFENAC [Suspect]
     Active Substance: DICLOFENAC
     Indication: Prophylaxis
     Route: 048
  5. METHYLDOPA [Concomitant]
     Active Substance: METHYLDOPA
     Indication: Hypertension
     Route: 065
  6. METHYLDOPA [Concomitant]
     Active Substance: METHYLDOPA
     Indication: Product used for unknown indication
  7. IRON [Concomitant]
     Active Substance: IRON
     Indication: Pregnancy
     Route: 048
  8. FOLIC ACID [Concomitant]
     Active Substance: FOLIC ACID
     Indication: Product used for unknown indication
     Route: 065

REACTIONS (16)
  - Drug reaction with eosinophilia and systemic symptoms [Recovered/Resolved]
  - Therapy non-responder [Unknown]
  - Rash maculo-papular [Recovered/Resolved]
  - Asthenia [Unknown]
  - Pruritus [Unknown]
  - Pyrexia [Unknown]
  - Hepatitis toxic [Recovering/Resolving]
  - Colitis [Unknown]
  - Ascites [Unknown]
  - Odynophagia [Recovered/Resolved]
  - Diarrhoea [Unknown]
  - Hepatomegaly [Unknown]
  - Cough [Recovered/Resolved]
  - Myalgia [Recovered/Resolved]
  - Maternal exposure during breast feeding [Recovered/Resolved]
  - Exposure during pregnancy [Unknown]
